FAERS Safety Report 8675430 (Version 2)
Quarter: 2015Q2

REPORT INFORMATION
  Report Type: Report from Study
  Country: US (occurrence: US)
  Receive Date: 20120720
  Receipt Date: 20150626
  Transmission Date: 20150821
  Serious: Yes (Death)
  Sender: FDA-Public Use
  Company Number: US-ROCHE-1088163

PATIENT
  Age: 79 Year
  Sex: Female

DRUGS (5)
  1. LUCENTIS [Suspect]
     Active Substance: RANIBIZUMAB
     Indication: DIABETIC RETINOPATHY
     Dosage: MONTHLY 3 X THEN QUARTERLY
     Route: 050
     Dates: start: 20081008, end: 20091130
  2. OMNIPRED [Concomitant]
     Active Substance: PREDNISOLONE ACETATE
     Route: 065
  3. NEVANAC [Concomitant]
     Active Substance: NEPAFENAC
     Route: 065
  4. ALPHAGAN P [Concomitant]
     Active Substance: BRIMONIDINE TARTRATE
  5. LUCENTIS [Suspect]
     Active Substance: RANIBIZUMAB
     Indication: RETINAL OEDEMA

REACTIONS (4)
  - Death [Fatal]
  - Sinus disorder [Unknown]
  - Off label use [Unknown]
  - Visual acuity reduced [Unknown]

NARRATIVE: CASE EVENT DATE: 200912
